FAERS Safety Report 5389915-8 (Version None)
Quarter: 2007Q3

REPORT INFORMATION
  Report Type: 
  Country: None (occurrence: None)
  Receive Date: 20070718
  Receipt Date: 20070710
  Transmission Date: 20080115
  Serious: Yes (Hospitalization)
  Sender: FDA-Public Use
  Company Number: US-JNJFOC-20070702099

PATIENT
  Sex: Male
  Weight: 58.97 kg

DRUGS (26)
  1. DURAGESIC-100 [Suspect]
     Route: 062
  2. DURAGESIC-100 [Suspect]
     Indication: NECK PAIN
     Route: 062
  3. LIDODERM [Concomitant]
     Indication: PAIN
     Route: 062
  4. ZOFRAN [Concomitant]
     Indication: VOMITING
     Route: 048
  5. ZOFRAN [Concomitant]
     Indication: NAUSEA
     Route: 048
  6. FENTORA [Concomitant]
     Indication: PAIN
     Route: 048
  7. ZANAFLEX [Concomitant]
     Indication: MUSCLE SPASMS
     Route: 048
  8. LIDODERM [Concomitant]
     Route: 048
  9. CLARINEX [Concomitant]
     Indication: SEASONAL ALLERGY
     Route: 048
  10. FORADIL [Concomitant]
     Indication: ASTHMA
     Route: 055
  11. ASMANEX TWISTHALER [Concomitant]
     Indication: ASTHMA
     Dosage: 2 PUFFS EVERY 6 HOURS
     Route: 055
  12. OPIUM [Concomitant]
     Indication: DIARRHOEA
     Dosage: 8 DROPS TWICE DAILY
     Route: 048
  13. ZANTEC [Concomitant]
     Indication: DYSPEPSIA
     Route: 048
  14. PRILOSEC [Concomitant]
     Indication: GASTROOESOPHAGEAL REFLUX DISEASE
     Route: 048
  15. SEROQUEL [Concomitant]
     Indication: INSOMNIA
     Route: 048
  16. AMBIEN [Concomitant]
     Indication: INSOMNIA
     Route: 048
  17. IMITREX [Concomitant]
     Indication: MIGRAINE
     Route: 048
  18. DIAZEPAM [Concomitant]
     Indication: MUSCLE SPASMS
     Route: 048
  19. DIAZEPAM [Concomitant]
     Indication: ANXIETY
     Route: 048
  20. DIAZEPAM [Concomitant]
     Indication: SLEEP DISORDER
     Route: 048
  21. PAMINE FORTE [Concomitant]
     Indication: MUSCLE SPASMS
     Dosage: AS NEEDED
     Route: 048
  22. GINGER ROOT [Concomitant]
     Indication: NAUSEA
     Route: 048
  23. PAPAYA [Concomitant]
     Indication: NAUSEA
     Route: 065
  24. RECTAL CREAM [Concomitant]
     Indication: PROCTALGIA
     Route: 061
  25. PRAMOSONE [Concomitant]
     Indication: PROCTALGIA
     Route: 061
  26. ALBUTEROL [Concomitant]
     Indication: ASTHMA
     Dosage: 2 PUFFS EVERY 6 HOURS
     Route: 055

REACTIONS (5)
  - APPLICATION SITE ERYTHEMA [None]
  - DEHYDRATION [None]
  - LOSS OF CONSCIOUSNESS [None]
  - NECK PAIN [None]
  - WRONG TECHNIQUE IN DRUG USAGE PROCESS [None]
